FAERS Safety Report 9732859 (Version 1)
Quarter: 2013Q4

REPORT INFORMATION
  Report Type: Spontaneous
  Country: US (occurrence: US)
  Receive Date: 20131204
  Receipt Date: 20131204
  Transmission Date: 20140711
  Serious: No
  Sender: FDA-Public Use
  Company Number: US-GILEAD-2009-0021556

PATIENT
  Sex: Female
  Weight: 98.88 kg

DRUGS (12)
  1. LETAIRIS [Suspect]
     Indication: PULMONARY ARTERIAL HYPERTENSION
     Route: 048
  2. LETAIRIS [Suspect]
     Route: 048
  3. LETAIRIS [Suspect]
     Route: 048
     Dates: start: 20071108
  4. LASIX [Concomitant]
  5. COUMADIN [Concomitant]
  6. TENORMIN [Concomitant]
  7. KLONOPIN [Concomitant]
  8. MAXALT [Concomitant]
  9. CYPROHEPTADINE [Concomitant]
  10. ZETIA [Concomitant]
  11. OXYCONTIN [Concomitant]
  12. PROZAC [Concomitant]

REACTIONS (1)
  - Liver function test abnormal [Unknown]
